FAERS Safety Report 25527606 (Version 1)
Quarter: 2025Q3

REPORT INFORMATION
  Report Type: Spontaneous
  Country: EU (occurrence: EU)
  Receive Date: 20250708
  Receipt Date: 20250708
  Transmission Date: 20251020
  Serious: Yes (Death, Other)
  Sender: AMGEN
  Company Number: EU-AMGEN-ESPSP2025131856

PATIENT

DRUGS (1)
  1. CARFILZOMIB [Suspect]
     Active Substance: CARFILZOMIB
     Indication: Plasma cell myeloma
     Route: 065

REACTIONS (10)
  - Death [Fatal]
  - Visceral leishmaniasis [Fatal]
  - Plasma cell myeloma refractory [Unknown]
  - Pancytopenia [Unknown]
  - Hypogammaglobulinaemia [Unknown]
  - Plasma cell myeloma [Unknown]
  - Splenomegaly [Unknown]
  - Hypergammaglobulinaemia [Unknown]
  - Lymphopenia [Unknown]
  - Pyrexia [Unknown]
